FAERS Safety Report 4504369-9 (Version None)
Quarter: 2004Q4

REPORT INFORMATION
  Report Type: 
  Country: None (occurrence: None)
  Receive Date: 20041115
  Receipt Date: 20041101
  Transmission Date: 20050328
  Serious: Yes (Other)
  Sender: FDA-Public Use
  Company Number: 2004057654

PATIENT
  Age: 60 Year
  Sex: Male

DRUGS (2)
  1. VIAGRA [Suspect]
     Indication: ERECTILE DYSFUNCTION
     Dosage: 50 MG (100 MG, 8 IN 1 M), ORAL
     Route: 048
  2. LEVOTHYOXINE SODIUM (LEVOTHYROXINE SODIUM) [Concomitant]

REACTIONS (3)
  - GASTROOESOPHAGEAL REFLUX DISEASE [None]
  - LARYNGEAL CANCER [None]
  - TRACHEOSTOMY [None]
